FAERS Safety Report 5041050-4 (Version None)
Quarter: 2006Q2

REPORT INFORMATION
  Report Type: 
  Country: None (occurrence: None)
  Receive Date: 20060630
  Receipt Date: 20060630
  Transmission Date: 20061013
  Serious: Yes (Hospitalization)
  Sender: FDA-Public Use
  Company Number: None

PATIENT
  Age: 68 Year
  Sex: Male
  Weight: 56.5 kg

DRUGS (1)
  1. HYDROCHLOROTHIAZIDE [Suspect]
     Indication: HYPERTENSION
     Dosage: 25 MG QD PO [SEVERAL YEARS]
     Route: 048

REACTIONS (16)
  - ACUTE CORONARY SYNDROME [None]
  - ANXIETY [None]
  - ASTHENIA [None]
  - BLOOD MAGNESIUM ABNORMAL [None]
  - BLOOD PRESSURE SYSTOLIC DECREASED [None]
  - COELIAC DISEASE [None]
  - DIARRHOEA [None]
  - FAECAL INCONTINENCE [None]
  - FAILURE TO THRIVE [None]
  - HAEMOGLOBIN DECREASED [None]
  - HYPOKALAEMIA [None]
  - HYPOTENSION [None]
  - IMPAIRED SELF-CARE [None]
  - NAUSEA [None]
  - ORAL INTAKE REDUCED [None]
  - PHOBIA OF FLYING [None]
